FAERS Safety Report 5676318-1 (Version None)
Quarter: 2008Q1

REPORT INFORMATION
  Report Type: 
  Country: None (occurrence: None)
  Receive Date: 20080321
  Receipt Date: 20080311
  Transmission Date: 20080703
  Serious: Yes (Hospitalization, Other)
  Sender: FDA-Public Use
  Company Number: US-PFIZER INC-2008013301

PATIENT
  Sex: Female
  Weight: 63.1 kg

DRUGS (13)
  1. LYRICA [Suspect]
     Indication: DIABETIC NEUROPATHY
     Route: 048
     Dates: start: 20071210, end: 20071211
  2. DEMADEX [Concomitant]
  3. POTASSIUM CHLORIDE [Concomitant]
  4. PREVACID [Concomitant]
  5. METOLAZONE [Concomitant]
  6. ASPIRIN [Concomitant]
  7. COLCHICINE W/PROBENECID [Concomitant]
  8. ACETAMINOPHEN [Concomitant]
  9. ADVAIR DISKUS 100/50 [Concomitant]
  10. ALBUTEROL [Concomitant]
  11. SINGULAIR [Concomitant]
  12. LIPITOR [Concomitant]
  13. SYNTHROID [Concomitant]

REACTIONS (5)
  - ABASIA [None]
  - ATAXIA [None]
  - DIZZINESS [None]
  - FALL [None]
  - HEAD INJURY [None]
